FAERS Safety Report 4395397-5 (Version None)
Quarter: 2004Q3

REPORT INFORMATION
  Report Type: 
  Country: None (occurrence: None)
  Receive Date: 20040712
  Receipt Date: 20040712
  Transmission Date: 20050211
  Serious: Yes (Hospitalization)
  Sender: FDA-Public Use
  Company Number: None

PATIENT
  Age: 6 Year
  Sex: Female
  Weight: 23.7 kg

DRUGS (5)
  1. PEG ASPARAGINASE [Suspect]
     Indication: ACUTE LYMPHOCYTIC LEUKAEMIA
     Dosage: 2175 IU INTRAMUSCULAR
     Route: 030
     Dates: start: 20040628, end: 20040628
  2. VINCRISTINE [Concomitant]
  3. DIFLUCAN [Concomitant]
  4. SINGULAIR [Concomitant]
  5. ZANTAC [Concomitant]

REACTIONS (6)
  - BLOOD PRESSURE FLUCTUATION [None]
  - POST PROCEDURAL COMPLICATION [None]
  - RESPIRATORY DISTRESS [None]
  - SWELLING FACE [None]
  - URTICARIA [None]
  - WHEEZING [None]
